FAERS Safety Report 5380302-5 (Version None)
Quarter: 2007Q3

REPORT INFORMATION
  Report Type: 
  Country: None (occurrence: None)
  Receive Date: 20070706
  Receipt Date: 20070516
  Transmission Date: 20080115
  Serious: No
  Sender: FDA-Public Use
  Company Number: A0651571A

PATIENT
  Age: 58 Year
  Sex: Female

DRUGS (9)
  1. TYKERB [Suspect]
     Indication: BREAST CANCER
     Dosage: 1250MG PER DAY
     Route: 048
     Dates: start: 20070508
  2. XELODA [Concomitant]
  3. FEMARA [Concomitant]
  4. MULTI-VITAMIN [Concomitant]
  5. FISH OIL [Concomitant]
  6. CALCIUM CHLORIDE [Concomitant]
  7. VITAMIN E [Concomitant]
  8. NEXIUM [Concomitant]
  9. PAXIL [Concomitant]

REACTIONS (4)
  - DIARRHOEA [None]
  - FATIGUE [None]
  - ORAL HERPES [None]
  - VOMITING [None]
